FAERS Safety Report 15010755 (Version 1)
Quarter: 2018Q2

REPORT INFORMATION
  Report Type: Spontaneous
  Country: US (occurrence: US)
  Receive Date: 20180529
  Receipt Date: 20180529
  Transmission Date: 20180711
  Serious: Yes (Hospitalization)
  Sender: FDA-Public Use
  Company Number: None

PATIENT
  Age: 51 Year
  Sex: Male
  Weight: 108 kg

DRUGS (4)
  1. LISINAPRIL [Concomitant]
  2. PANTOSOLSE [Concomitant]
  3. TROKENDI XR [Suspect]
     Active Substance: TOPIRAMATE
     Indication: WEIGHT DECREASED
     Dosage: ?          QUANTITY:1 DF DOSAGE FORM;?
     Dates: start: 20180406, end: 20180527
  4. NORVASC [Concomitant]
     Active Substance: AMLODIPINE BESYLATE

REACTIONS (2)
  - Atrial fibrillation [None]
  - Loss of consciousness [None]

NARRATIVE: CASE EVENT DATE: 20180527
